FAERS Safety Report 4675695-8 (Version None)
Quarter: 2005Q2

REPORT INFORMATION
  Report Type: 
  Country: None (occurrence: None)
  Receive Date: 20050527
  Receipt Date: 20050201
  Transmission Date: 20051028
  Serious: Yes (Other)
  Sender: FDA-Public Use
  Company Number: US-BRISTOL-MYERS SQUIBB COMPANY-12845541

PATIENT
  Age: 49 Year
  Sex: Male
  Weight: 71 kg

DRUGS (10)
  1. ERBITUX [Suspect]
     Indication: COLORECTAL CANCER METASTATIC
     Dosage: INITIAL TREATMENT, 2ND INFUSION 24-JAN-05
     Dates: start: 20050117, end: 20050117
  2. DECADRON [Concomitant]
     Indication: PREMEDICATION
     Route: 042
     Dates: start: 20050117, end: 20050117
  3. BENADRYL [Concomitant]
     Indication: PREMEDICATION
     Dosage: PRE-MEDICATION AND OVER THE COUNTER FORM TAKEN
     Route: 042
     Dates: start: 20050117, end: 20050117
  4. KYTRIL [Concomitant]
     Indication: PREMEDICATION
     Route: 042
     Dates: start: 20050117, end: 20050117
  5. ELOXATIN [Concomitant]
     Dates: start: 20050117
  6. FLUOROURACIL [Concomitant]
     Dates: start: 20050117
  7. LEUCOVORIN CALCIUM [Concomitant]
     Dates: start: 20050117
  8. WELLBUTRIN [Concomitant]
  9. LACTULOSE [Concomitant]
     Dosage: DOSAGE FORM = 4-6 TBS
  10. MILK OF MAGNESIA TAB [Concomitant]

REACTIONS (1)
  - DERMATITIS ACNEIFORM [None]
